FAERS Safety Report 9449744 (Version 2)
Quarter: 2013Q4

REPORT INFORMATION
  Report Type: Spontaneous
  Country: US (occurrence: US)
  Receive Date: 20130809
  Receipt Date: 20131230
  Transmission Date: 20140711
  Serious: Yes (Other)
  Sender: FDA-Public Use
  Company Number: US-BAYER-2013-096444

PATIENT
  Age: 26 Year
  Sex: Female
  Weight: 77.1 kg

DRUGS (2)
  1. YASMIN [Suspect]
     Indication: PREMENSTRUAL SYNDROME
     Dosage: UNK
     Dates: start: 200611, end: 200709
  2. MOTRIN [Concomitant]
     Indication: PAIN
     Dosage: UNK

REACTIONS (8)
  - Pulmonary embolism [Recovering/Resolving]
  - Pain [Recovering/Resolving]
  - Injury [Recovering/Resolving]
  - General physical health deterioration [Recovering/Resolving]
  - Anhedonia [None]
  - Anxiety [None]
  - Emotional distress [None]
  - Chest pain [Recovering/Resolving]
